FAERS Safety Report 7097221-9 (Version None)
Quarter: 2010Q4

REPORT INFORMATION
  Report Type: 
  Country: None (occurrence: None)
  Receive Date: 20101111
  Receipt Date: 20100315
  Transmission Date: 20110411
  Serious: No
  Sender: FDA-Public Use
  Company Number: US-KINGPHARMUSA00001-K201000304

PATIENT
  Age: 69 Year
  Sex: Female
  Weight: 56.689 kg

DRUGS (5)
  1. AVINZA [Suspect]
     Indication: BACK PAIN
     Dosage: 30 MG, QD
     Route: 048
     Dates: start: 20100222, end: 20100310
  2. AVINZA [Suspect]
     Dosage: 30 MG, QD
     Route: 048
     Dates: start: 20090101
  3. AVINZA [Suspect]
     Dosage: 60 MG, QD
     Route: 048
     Dates: end: 20100222
  4. AVINZA [Suspect]
     Dosage: 30 MG, QD
     Route: 048
     Dates: start: 20100312
  5. SYNTHROID [Concomitant]
     Indication: THYROIDECTOMY
     Dosage: .112 MG, QD
     Route: 048

REACTIONS (3)
  - FEELING JITTERY [None]
  - WEIGHT DECREASED [None]
  - WITHDRAWAL SYNDROME [None]
